FAERS Safety Report 16199068 (Version 1)
Quarter: 2019Q2

REPORT INFORMATION
  Report Type: Report from Study
  Country: ES (occurrence: ES)
  Receive Date: 20190415
  Receipt Date: 20190415
  Transmission Date: 20190711
  Serious: Yes (Death, Hospitalization)
  Sender: FDA-Public Use
  Company Number: ES-CELGENEUS-ESP-20170903779

PATIENT
  Age: 70 Year
  Sex: Male
  Weight: 49 kg

DRUGS (2)
  1. GEMCITABINE [Suspect]
     Active Substance: GEMCITABINE\GEMCITABINE HYDROCHLORIDE
     Indication: PANCREATIC CARCINOMA METASTATIC
     Dosage: 2181 MILLIGRAM
     Route: 041
     Dates: start: 20170821, end: 20170828
  2. ABRAXANE [Suspect]
     Active Substance: PACLITAXEL
     Indication: PANCREATIC CARCINOMA METASTATIC
     Dosage: 272.63 MILLIGRAM
     Route: 041
     Dates: start: 20170821, end: 20170828

REACTIONS (3)
  - General physical health deterioration [Fatal]
  - Lung infection [Fatal]
  - Arthralgia [Recovered/Resolved]

NARRATIVE: CASE EVENT DATE: 20170909
